FAERS Safety Report 25786945 (Version 1)
Quarter: 2025Q3

REPORT INFORMATION
  Report Type: Spontaneous
  Country: JP (occurrence: JP)
  Receive Date: 20250910
  Receipt Date: 20250910
  Transmission Date: 20251020
  Serious: Yes (Life-Threatening)
  Sender: INTERCHEM
  Company Number: JP-HQ SPECIALTY-JP-2025INT000067

PATIENT
  Age: 49 Year
  Sex: Male
  Weight: 52 kg

DRUGS (7)
  1. DEXMEDETOMIDINE HYDROCHLORIDE [Suspect]
     Active Substance: DEXMEDETOMIDINE HYDROCHLORIDE
     Indication: Sedation
     Dosage: 0.4 MICROGRAM/KILOGRAM, QH
     Route: 065
  2. DEXMEDETOMIDINE HYDROCHLORIDE [Suspect]
     Active Substance: DEXMEDETOMIDINE HYDROCHLORIDE
     Indication: Analgesic therapy
  3. FENTANYL [Concomitant]
     Active Substance: FENTANYL
     Indication: Analgesic therapy
     Dosage: 2 MICROGRAM/KILOGRAM, QH
     Route: 065
  4. FENTANYL [Concomitant]
     Active Substance: FENTANYL
     Indication: Sedation
  5. METHIMAZOLE [Concomitant]
     Active Substance: METHIMAZOLE
     Indication: Product used for unknown indication
     Dosage: 30 MG, QD
     Route: 065
  6. HYDROCORTISONE [Concomitant]
     Active Substance: HYDROCORTISONE
     Indication: Product used for unknown indication
     Dosage: 300 MG, QD
     Route: 065
  7. LANDIOLOL [Concomitant]
     Active Substance: LANDIOLOL
     Indication: Product used for unknown indication
     Route: 065

REACTIONS (4)
  - Thyrotoxic crisis [Recovered/Resolved]
  - Paroxysmal sympathetic hyperactivity [Recovered/Resolved]
  - Withdrawal syndrome [Recovered/Resolved]
  - Product use in unapproved indication [Recovered/Resolved]
